FAERS Safety Report 13583043 (Version 6)
Quarter: 2018Q4

REPORT INFORMATION
  Report Type: Spontaneous
  Country: US (occurrence: US)
  Receive Date: 20170525
  Receipt Date: 20181221
  Transmission Date: 20190204
  Serious: Yes (Death, Hospitalization)
  Sender: FDA-Public Use
  Company Number: US-ACTELION-A-NJ2017-154343

PATIENT
  Age: 65 Year
  Sex: Female

DRUGS (4)
  1. TRACLEER [Suspect]
     Active Substance: BOSENTAN
     Indication: PULMONARY ARTERIAL HYPERTENSION
     Dosage: 125 MG, Q12HRS
     Route: 048
     Dates: start: 20060310, end: 20181209
  2. OMEPRAZOLE. [Concomitant]
     Active Substance: OMEPRAZOLE
     Dosage: 40 MG, BID
  3. TYVASO [Suspect]
     Active Substance: TREPROSTINIL
     Indication: PRODUCT USED FOR UNKNOWN INDICATION
     Route: 065
  4. MYCOPHENOLATE [Concomitant]
     Active Substance: MYCOPHENOLIC ACID
     Dosage: 1000 MG, BID

REACTIONS (7)
  - Raynaud^s phenomenon [Unknown]
  - Feeling cold [Unknown]
  - Fluid overload [Recovered/Resolved]
  - Death [Fatal]
  - Cardiac failure [Recovered/Resolved]
  - Skin ulcer [Unknown]
  - Impaired healing [Unknown]

NARRATIVE: CASE EVENT DATE: 20170427
